FAERS Safety Report 15016061 (Version 1)
Quarter: 2018Q2

REPORT INFORMATION
  Report Type: Spontaneous
  Country: US (occurrence: US)
  Receive Date: 20180522
  Receipt Date: 20180522
  Transmission Date: 20180711
  Serious: Yes (Hospitalization)
  Sender: FDA-Public Use
  Company Number: None

PATIENT
  Age: 49 Year
  Sex: Female
  Weight: 54.5 kg

DRUGS (23)
  1. HYDROXYZINE [Concomitant]
     Active Substance: HYDROXYZINE HYDROCHLORIDE
  2. LIDOCAINE. [Concomitant]
     Active Substance: LIDOCAINE
  3. DOCUSATE SODIUM. [Concomitant]
     Active Substance: DOCUSATE SODIUM
  4. DICLOFENAC [Concomitant]
     Active Substance: DICLOFENAC
  5. NICOTINE POLACRILEX [Concomitant]
     Active Substance: NICOTINE
  6. BACLOFEN. [Concomitant]
     Active Substance: BACLOFEN
  7. EPCLUSA [Suspect]
     Active Substance: SOFOSBUVIR\VELPATASVIR
     Indication: HEPATITIS C
     Route: 048
     Dates: start: 20170721, end: 20171017
  8. ACETAMINOPHEN. [Concomitant]
     Active Substance: ACETAMINOPHEN
  9. METFORMIN [Concomitant]
     Active Substance: METFORMIN HYDROCHLORIDE
  10. LACTULOSE. [Concomitant]
     Active Substance: LACTULOSE
  11. KETOCONAZOLE SHAMPOO [Concomitant]
     Active Substance: KETOCONAZOLE
  12. FLUCINOCNIDE [Concomitant]
  13. NEOSPORIN [Concomitant]
     Active Substance: BACITRACIN ZINC\NEOMYCIN SULFATE\POLYMYXIN B SULFATE
  14. CLOBETASOL [Concomitant]
     Active Substance: CLOBETASOL
  15. DOXEPIN [Concomitant]
     Active Substance: DOXEPIN
  16. FERROUS SULFATE. [Concomitant]
     Active Substance: FERROUS SULFATE
  17. GLIPIZIDE. [Concomitant]
     Active Substance: GLIPIZIDE
  18. POLYETHLENE GLYCOL [Concomitant]
  19. CLOBETASOL [Concomitant]
     Active Substance: CLOBETASOL
  20. LISINOPRIL. [Concomitant]
     Active Substance: LISINOPRIL
  21. TRIAMCINOLONE [Concomitant]
     Active Substance: TRIAMCINOLONE
  22. DASONIDE [Concomitant]
  23. VANICREAM [Concomitant]
     Active Substance: TITANIUM DIOXIDE\ZINC OXIDE

REACTIONS (11)
  - Renal impairment [None]
  - Hyperkalaemia [None]
  - Erythema [None]
  - Skin infection [None]
  - Abdominal pain [None]
  - Drug dose omission [None]
  - Sepsis [None]
  - Catheter site pain [None]
  - Blood pressure inadequately controlled [None]
  - Skin disorder [None]
  - Soft tissue infection [None]

NARRATIVE: CASE EVENT DATE: 20170826
